FAERS Safety Report 9697488 (Version 2)
Quarter: 2013Q4

REPORT INFORMATION
  Report Type: Spontaneous
  Country: KR (occurrence: KR)
  Receive Date: 20131120
  Receipt Date: 20131120
  Transmission Date: 20140711
  Serious: Yes (Death, Other)
  Sender: FDA-Public Use
  Company Number: PHHO2013KR013367

PATIENT
  Age: 44 Year
  Sex: Male

DRUGS (3)
  1. EVEROLIMUS [Suspect]
     Indication: GASTRIC CANCER
     Dosage: 5 MG, BID (GIVEN ON DAYS 01 TO 21 WITHOUT REST)
     Route: 048
     Dates: start: 20100531, end: 20100706
  2. EVEROLIMUS [Suspect]
     Indication: OFF LABEL USE
  3. CAPECITABINE [Suspect]
     Indication: GASTRIC CANCER
     Dosage: 650 MG/M2, BID (1 TO 14 DAYS FOLLOW BY 7 DAY REST

REACTIONS (3)
  - Malignant neoplasm progression [Fatal]
  - Haematochezia [Unknown]
  - Palmar-plantar erythrodysaesthesia syndrome [Unknown]
